FAERS Safety Report 7738795-1 (Version None)
Quarter: 2011Q3

REPORT INFORMATION
  Report Type: 
  Country: None (occurrence: None)
  Receive Date: 20110906
  Receipt Date: 20110818
  Transmission Date: 20111222
  Serious: Yes (Other)
  Sender: FDA-Public Use
  Company Number: 2011P1008391

PATIENT
  Age: 12 Year
  Sex: Male

DRUGS (5)
  1. MYCOPHENOLATE MOFETIL [Suspect]
  2. CARBAMAZEPINE [Suspect]
  3. SOLIRIS [Suspect]
     Indication: HAEMOLYTIC URAEMIC SYNDROME
     Dosage: 600 MG; QD; IV, 600 MG; X1; IV, 600 MG; BIW; IV
     Route: 042
     Dates: start: 20110207
  4. SOLIRIS [Suspect]
     Indication: HAEMOLYTIC URAEMIC SYNDROME
     Dosage: 600 MG; QD; IV, 600 MG; X1; IV, 600 MG; BIW; IV
     Route: 042
     Dates: start: 20110124, end: 20110125
  5. SOLIRIS [Suspect]
     Indication: HAEMOLYTIC URAEMIC SYNDROME
     Dosage: 600 MG; QD; IV, 600 MG; X1; IV, 600 MG; BIW; IV
     Route: 042
     Dates: start: 20110131, end: 20110131

REACTIONS (5)
  - LYMPHOCYTE COUNT DECREASED [None]
  - ASPARTATE AMINOTRANSFERASE INCREASED [None]
  - BLOOD ALKALINE PHOSPHATASE INCREASED [None]
  - ALANINE AMINOTRANSFERASE INCREASED [None]
  - GAMMA-GLUTAMYLTRANSFERASE INCREASED [None]
